FAERS Safety Report 23232546 (Version 1)
Quarter: 2023Q4

REPORT INFORMATION
  Report Type: Spontaneous
  Country: US (occurrence: US)
  Receive Date: 20231128
  Receipt Date: 20231128
  Transmission Date: 20240110
  Serious: Yes (Hospitalization, Other)
  Sender: FDA-Public Use
  Company Number: US-drreddys-LIT/USA/23/0187045

PATIENT
  Age: 35 Year
  Sex: Female

DRUGS (5)
  1. NALOXONE HYDROCHLORIDE [Suspect]
     Active Substance: NALOXONE HYDROCHLORIDE
     Indication: Loss of consciousness
     Route: 030
  2. NALOXONE HYDROCHLORIDE [Suspect]
     Active Substance: NALOXONE HYDROCHLORIDE
     Dosage: IV NALOXONE 0.4 MG
     Route: 042
  3. DIAZEPAM [Suspect]
     Active Substance: DIAZEPAM
     Indication: Product used for unknown indication
     Dosage: 30 TABLETS OF 2MG
  4. ACETAMINOPHEN\HYDROCODONE BITARTRATE [Suspect]
     Active Substance: ACETAMINOPHEN\HYDROCODONE BITARTRATE
     Indication: Product used for unknown indication
     Dosage: 10-325MG FOUR TIMES IN THE 24H BEFORE PRESENTATION; 12 TABLETS
  5. DEXTROSE [Concomitant]
     Active Substance: DEXTROSE\DEXTROSE MONOHYDRATE
     Indication: Hypoglycaemia
     Dosage: GLUCOSE 5%? 0.45% NORMAL SALINE INFUSION AT 125 ML/H
     Route: 042

REACTIONS (2)
  - Hypoglycaemia [Recovered/Resolved]
  - Drug abuse [Unknown]
